FAERS Safety Report 22174308 (Version 1)
Quarter: 2023Q2

REPORT INFORMATION
  Report Type: Other
  Country: US (occurrence: None)
  Receive Date: 20230405
  Receipt Date: 20230405
  Transmission Date: 20230722
  Serious: Yes (Other)
  Sender: FDA-Public Use
  Company Number: US-ROCHE-3321047

PATIENT
  Age: 58 Year
  Sex: Male

DRUGS (8)
  1. OCREVUS [Suspect]
     Active Substance: OCRELIZUMAB
     Indication: Multiple sclerosis
     Route: 042
  2. BETASERON [Concomitant]
     Active Substance: INTERFERON BETA-1B
     Indication: Multiple sclerosis
     Dosage: 10 YEARS
  3. MITOXANTRONE [Concomitant]
     Active Substance: MITOXANTRONE HYDROCHLORIDE
     Indication: Multiple sclerosis
     Dosage: 6 MONTHS
  4. TYSABRI [Concomitant]
     Active Substance: NATALIZUMAB
     Indication: Multiple sclerosis
     Dosage: 2 YEARS; JCV POSITIVE DURING 2 YEAR COURSE
  5. TECFIDERA [Concomitant]
     Active Substance: DIMETHYL FUMARATE
     Indication: Multiple sclerosis
     Dosage: 2 YEARS: DISEASE PROGRESSION.
  6. DESMOPRESSIN [Concomitant]
     Active Substance: DESMOPRESSIN
     Dosage: NIGHTLY
     Route: 048
     Dates: start: 20220713
  7. PREDNISOLONE [Concomitant]
     Active Substance: PREDNISOLONE
     Dosage: TAKE 1 TAB BY MOUTH AT NOON AND BEDTIME WITH BENADRYL 25 MG THE DAY PRIOR TO INFUSION
     Route: 048
     Dates: start: 20221206
  8. LIORESAL [Concomitant]
     Active Substance: BACLOFEN
     Route: 048
     Dates: start: 20220216

REACTIONS (12)
  - COVID-19 [Unknown]
  - Fatigue [Unknown]
  - Gait disturbance [Unknown]
  - Musculoskeletal stiffness [Unknown]
  - Coordination abnormal [Unknown]
  - Tremor [Unknown]
  - Paraesthesia [Unknown]
  - Blindness unilateral [Unknown]
  - Diplopia [Unknown]
  - Hypoaesthesia [Unknown]
  - Neuropathy peripheral [Unknown]
  - Incontinence [Unknown]
